FAERS Safety Report 23033180 (Version 5)
Quarter: 2023Q4

REPORT INFORMATION
  Report Type: Spontaneous
  Country: US (occurrence: US)
  Receive Date: 20231005
  Receipt Date: 20231220
  Transmission Date: 20240110
  Serious: Yes (Other)
  Sender: FDA-Public Use
  Company Number: US-SA-SAC20231004001156

PATIENT
  Age: 67 Year
  Sex: Male

DRUGS (2)
  1. DUPIXENT [Suspect]
     Active Substance: DUPILUMAB
     Indication: Dermatitis atopic
     Dosage: 600 MG, 1X
     Route: 058
     Dates: start: 202309, end: 202309
  2. DUPIXENT [Suspect]
     Active Substance: DUPILUMAB
     Dosage: 300 MG, QOW
     Route: 058
     Dates: start: 2023

REACTIONS (4)
  - Nephrolithiasis [Unknown]
  - Rash pruritic [Unknown]
  - Rash [Unknown]
  - Arthralgia [Unknown]

NARRATIVE: CASE EVENT DATE: 20230101
